FAERS Safety Report 4509947-9 (Version None)
Quarter: 2004Q4

REPORT INFORMATION
  Report Type: 
  Country: None (occurrence: None)
  Receive Date: 20041124
  Receipt Date: 20041118
  Transmission Date: 20050328
  Serious: Yes (Death)
  Sender: FDA-Public Use
  Company Number: JP-JNJFOC-20040704582

PATIENT
  Sex: Male

DRUGS (14)
  1. DUROTEP [Suspect]
     Route: 062
     Dates: start: 20030704, end: 20031105
  2. DUROTEP [Suspect]
     Route: 062
     Dates: start: 20030704, end: 20031105
  3. DUROTEP [Suspect]
     Route: 062
     Dates: start: 20030704, end: 20031105
  4. DUROTEP [Suspect]
     Route: 062
     Dates: start: 20030704, end: 20031105
  5. DUROTEP [Suspect]
     Indication: CANCER PAIN
     Route: 062
     Dates: start: 20030704, end: 20031105
  6. MORPHINE HYDROCHLORIDE [Concomitant]
     Indication: CANCER PAIN
     Dosage: 20-50 MG PER DAY
     Route: 054
  7. BUCLADESINE SODIUM [Concomitant]
     Route: 049
  8. ROPION [Concomitant]
     Indication: CANCER PAIN
     Route: 042
  9. HYDROXYZINE HYDROCHLORIDE [Concomitant]
     Route: 049
  10. HALOPERIDOL [Concomitant]
     Dates: start: 20040713, end: 20040713
  11. CATAPLASMATA [Concomitant]
     Indication: NECK PAIN
     Dates: start: 20040704, end: 20040718
  12. CATAPLASMATA [Concomitant]
     Dosage: 3 TO 14 AS NEEDED PER DAY
     Dates: start: 20040704, end: 20040718
  13. MORPHINE SULFATE [Concomitant]
     Indication: CANCER PAIN
     Route: 049
  14. FLURBIPROFEN AXETIL [Concomitant]
     Indication: CANCER PAIN
     Route: 051

REACTIONS (6)
  - BACK PAIN [None]
  - DUODENAL FISTULA [None]
  - DUODENAL ULCER PERFORATION [None]
  - MALIGNANT NEOPLASM PROGRESSION [None]
  - PRODUCTIVE COUGH [None]
  - PYREXIA [None]
